FAERS Safety Report 7078357-5 (Version None)
Quarter: 2010Q4

REPORT INFORMATION
  Report Type: 
  Country: None (occurrence: None)
  Receive Date: 20101101
  Receipt Date: 20101101
  Transmission Date: 20110411
  Serious: Yes (Other)
  Sender: FDA-Public Use
  Company Number: None

PATIENT
  Age: 14 Year
  Sex: Male
  Weight: 52.1637 kg

DRUGS (2)
  1. PROZAC [Suspect]
     Indication: ANXIETY
  2. PROZAC [Suspect]
     Indication: OBSESSIVE-COMPULSIVE DISORDER

REACTIONS (4)
  - HOSTILITY [None]
  - INSOMNIA [None]
  - MOOD SWINGS [None]
  - RESTLESSNESS [None]
